FAERS Safety Report 5345197-4 (Version None)
Quarter: 2007Q2

REPORT INFORMATION
  Report Type: 
  Country: None (occurrence: None)
  Receive Date: 20070423
  Receipt Date: 20060705
  Transmission Date: 20071010
  Serious: Yes (Other)
  Sender: FDA-Public Use
  Company Number: WAES 0607USA00837

PATIENT
  Age: 46 Year
  Sex: Female
  Weight: 64.8644 kg

DRUGS (4)
  1. SINGULAIR [Suspect]
     Indication: HYPERSENSITIVITY
     Dosage: 10 MG/DAILY/PO
     Route: 048
     Dates: end: 20060630
  2. LIQUIBID D [Concomitant]
  3. NUVARING [Concomitant]
  4. RHINOCORT [Concomitant]

REACTIONS (2)
  - DIARRHOEA [None]
  - VOMITING [None]
